FAERS Safety Report 9933072 (Version 1)
Quarter: 2014Q1

REPORT INFORMATION
  Report Type: Spontaneous
  Country: US (occurrence: US)
  Receive Date: 20140228
  Receipt Date: 20140228
  Transmission Date: 20141002
  Serious: No
  Sender: FDA-Public Use
  Company Number: US-GLAXOSMITHKLINE-A1047192A

PATIENT
  Age: 52 Year
  Sex: Male

DRUGS (1)
  1. LAMICTAL [Suspect]
     Indication: MENTAL DISORDER
     Dosage: 200MG UNKNOWN
     Route: 065
     Dates: start: 20080916

REACTIONS (1)
  - Malaise [Unknown]
